FAERS Safety Report 10232959 (Version 1)
Quarter: 2014Q2

REPORT INFORMATION
  Report Type: Report from Study
  Country: JP (occurrence: JP)
  Receive Date: 20140612
  Receipt Date: 20140612
  Transmission Date: 20141212
  Serious: Yes (Hospitalization)
  Sender: FDA-Public Use
  Company Number: JP-SA-2014SA074454

PATIENT
  Age: 12 Year
  Sex: Male
  Weight: 53 kg

DRUGS (10)
  1. THYMOGLOBULINE [Suspect]
     Indication: BONE MARROW CONDITIONING REGIMEN
     Route: 042
     Dates: start: 20130108, end: 20130111
  2. ENDOXAN [Suspect]
     Indication: BONE MARROW CONDITIONING REGIMEN
     Route: 065
     Dates: start: 20130108, end: 20130111
  3. SOL-MELCORT [Concomitant]
     Indication: PROPHYLAXIS
     Dates: start: 20130108, end: 20130114
  4. CHLOR-TRIMETON [Concomitant]
     Indication: PROPHYLAXIS
     Dates: start: 20130108, end: 20130111
  5. PIPERACILLIN [Concomitant]
     Indication: PROPHYLAXIS
     Dates: start: 20130108, end: 20130119
  6. FUNGUARD [Concomitant]
     Indication: PROPHYLAXIS
     Dates: start: 20130108, end: 20130212
  7. GASTER [Concomitant]
     Indication: PROPHYLAXIS
     Dates: start: 2013, end: 20130211
  8. LASIX [Concomitant]
     Indication: PROPHYLAXIS
     Dates: start: 20130107, end: 20130113
  9. UROMITEXAN [Concomitant]
     Indication: PROPHYLAXIS
     Dates: start: 20130108, end: 20130111
  10. PRIMPERAN [Concomitant]
     Indication: PROPHYLAXIS
     Dates: start: 20130109, end: 20130114

REACTIONS (4)
  - Apnoea [Recovered/Resolved]
  - Hypoxia [Recovered/Resolved]
  - Pyrexia [Recovered/Resolved]
  - Dyspnoea [Recovered/Resolved]
